FAERS Safety Report 22235679 (Version 1)
Quarter: 2023Q2

REPORT INFORMATION
  Report Type: Spontaneous
  Country: US (occurrence: None)
  Receive Date: 20230419
  Receipt Date: 20230419
  Transmission Date: 20230721
  Serious: Yes (Other)
  Sender: FDA-Public Use
  Company Number: None

PATIENT
  Sex: Female

DRUGS (1)
  1. ENBREL [Suspect]
     Active Substance: ETANERCEPT
     Indication: Rheumatoid arthritis
     Dosage: 50 MG/ML SUBCUTANEOUS??INJECT THE CONTENTS OF 1 PRE-FILLED SYRINGE (50 MG) UNDER THE SKIN (SUBCUTANE
     Route: 058
     Dates: start: 20220419

REACTIONS (2)
  - Surgery [None]
  - Therapy interrupted [None]
